FAERS Safety Report 6370076-3 (Version None)
Quarter: 2009Q3

REPORT INFORMATION
  Report Type: 
  Country: None (occurrence: None)
  Receive Date: 20090918
  Receipt Date: 20090911
  Transmission Date: 20100115
  Serious: Yes (Hospitalization, Other)
  Sender: FDA-Public Use
  Company Number: TPA2009A02682

PATIENT
  Age: 56 Year
  Sex: Male
  Weight: 90.7194 kg

DRUGS (10)
  1. ACTOS [Suspect]
     Indication: DIABETES MELLITUS
     Dosage: 45 MG, 1 IN 1 D, PER ORAL
     Route: 048
     Dates: end: 20090903
  2. HALCION [Concomitant]
  3. SOMA [Concomitant]
  4. GLIPIZIDE [Concomitant]
  5. GEMFIBROZIL [Concomitant]
  6. METFORMIN HCL [Concomitant]
  7. AMITRIPTYLINE HYDROCHLORIDE [Concomitant]
  8. VICODIN [Concomitant]
  9. DOXAZOSIN MESYLATE [Concomitant]
  10. SIMVASTATIN [Concomitant]

REACTIONS (14)
  - DYSPNOEA [None]
  - GAIT DISTURBANCE [None]
  - HYPERKERATOSIS [None]
  - IMPAIRED HEALING [None]
  - MALAISE [None]
  - OPHTHALMOLOGICAL EXAMINATION ABNORMAL [None]
  - POOR PERIPHERAL CIRCULATION [None]
  - PYREXIA [None]
  - SKIN ULCER [None]
  - TOE AMPUTATION [None]
  - TREATMENT NONCOMPLIANCE [None]
  - VENOUS OCCLUSION [None]
  - VISION BLURRED [None]
  - WOUND INFECTION STAPHYLOCOCCAL [None]
